FAERS Safety Report 15449840 (Version 1)
Quarter: 2018Q4

REPORT INFORMATION
  Report Type: Spontaneous
  Country: CA (occurrence: CA)
  Receive Date: 20181001
  Receipt Date: 20181001
  Transmission Date: 20190204
  Serious: Yes (Hospitalization, Other)
  Sender: FDA-Public Use
  Company Number: CA-ROCHE-2191550

PATIENT
  Age: 48 Year
  Sex: Male

DRUGS (8)
  1. PREDNISONE. [Concomitant]
     Active Substance: PREDNISONE
     Route: 048
  2. HYDROCHLOROTHIAZIDE. [Concomitant]
     Active Substance: HYDROCHLOROTHIAZIDE
     Route: 048
  3. VITAMIN C [Concomitant]
     Active Substance: ASCORBIC ACID
     Dosage: 1 TAB
     Route: 065
  4. ZOPICLONE [Concomitant]
     Active Substance: ZOPICLONE
     Dosage: AT NIGHT
     Route: 048
     Dates: start: 20180711
  5. ASA [Concomitant]
     Active Substance: ASPIRIN
     Dosage: 1 TAB
     Route: 065
  6. PLASMA EXCHANGE [Concomitant]
     Active Substance: ALBUMIN HUMAN
     Route: 065
  7. CELLCEPT [Suspect]
     Active Substance: MYCOPHENOLATE MOFETIL\MYCOPHENOLATE MOFETIL HYDROCHLORIDE
     Indication: MYASTHENIA GRAVIS
     Dosage: ONGOING: YES
     Route: 048
     Dates: start: 201805
  8. PANTOPRAZOLE [Concomitant]
     Active Substance: PANTOPRAZOLE
     Route: 048

REACTIONS (18)
  - Facial paresis [Unknown]
  - Abdominal pain [Unknown]
  - Gamma-glutamyltransferase increased [Unknown]
  - Palpitations [Unknown]
  - Throat clearing [Unknown]
  - Blood cholesterol increased [Unknown]
  - Hepatic steatosis [Unknown]
  - Arrhythmia [Unknown]
  - Bulbar palsy [Unknown]
  - Plicated tongue [Unknown]
  - Cholelithiasis [Unknown]
  - Blood immunoglobulin G decreased [Unknown]
  - Anxiety [Unknown]
  - Hiatus hernia [Unknown]
  - Bradycardia [Unknown]
  - Hepatic enzyme increased [Unknown]
  - Tachycardia [Unknown]
  - Sleep disorder [Unknown]

NARRATIVE: CASE EVENT DATE: 20180823
